FAERS Safety Report 7141526-X (Version None)
Quarter: 2010Q4

REPORT INFORMATION
  Report Type: 
  Country: None (occurrence: None)
  Receive Date: 20101207
  Receipt Date: 20101201
  Transmission Date: 20110411
  Serious: Yes (Other)
  Sender: FDA-Public Use
  Company Number: JP-ASTRAZENECA-2010SE57333

PATIENT
  Age: 67 Year
  Sex: Female

DRUGS (2)
  1. OMEPRAL [Suspect]
     Route: 048
  2. DIPHENHYDRAMINE [Suspect]
     Route: 003

REACTIONS (1)
  - ACUTE GENERALISED EXANTHEMATOUS PUSTULOSIS [None]
